FAERS Safety Report 5406254-7 (Version None)
Quarter: 2007Q3

REPORT INFORMATION
  Report Type: 
  Country: None (occurrence: None)
  Receive Date: 20070806
  Receipt Date: 20070726
  Transmission Date: 20080115
  Serious: Yes (Life-Threatening, Hospitalization, Other)
  Sender: FDA-Public Use
  Company Number: HQWYE152120FEB07

PATIENT
  Sex: Male
  Weight: 54.03 kg

DRUGS (8)
  1. TEMSIROLIMUS [Suspect]
     Indication: MANTLE CELL LYMPHOMA
     Route: 042
     Dates: start: 20060425, end: 20070102
  2. GLIPIZIDE [Suspect]
     Indication: DIABETES MELLITUS
     Route: 048
     Dates: start: 20060711
  3. MORNIFLUMATE [Concomitant]
     Indication: DYSURIA
     Route: 048
     Dates: start: 20060913
  4. ZOCOR [Concomitant]
     Indication: HYPERCHOLESTEROLAEMIA
     Route: 048
     Dates: start: 20060927
  5. ZESTRIL [Concomitant]
     Indication: HYPERTENSION
     Route: 048
     Dates: start: 20060927
  6. URISPAS [Concomitant]
     Indication: DYSURIA
     Route: 048
     Dates: start: 20060913
  7. METFORMIN HCL [Suspect]
     Indication: DIABETES MELLITUS
     Route: 048
     Dates: start: 20060315
  8. ACTOS [Suspect]
     Indication: DIABETES MELLITUS
     Route: 048
     Dates: start: 20061028

REACTIONS (3)
  - HYPOGLYCAEMIA [None]
  - NON-SMALL CELL LUNG CANCER [None]
  - THROMBOCYTOPENIA [None]
